FAERS Safety Report 6365130-6 (Version None)
Quarter: 2009Q3

REPORT INFORMATION
  Report Type: 
  Country: None (occurrence: None)
  Receive Date: 20090919
  Receipt Date: 20090807
  Transmission Date: 20100115
  Serious: No
  Sender: FDA-Public Use
  Company Number: US-ABBOTT-09P-163-0590280-00

PATIENT
  Sex: Male
  Weight: 81.72 kg

DRUGS (10)
  1. HUMIRA [Suspect]
     Indication: PSORIASIS
     Route: 058
     Dates: start: 20080101
  2. CEPHALEXIN [Concomitant]
     Indication: STAPHYLOCOCCAL SKIN INFECTION
  3. POTASSIUM CHLORIDE [Concomitant]
     Indication: BLOOD POTASSIUM DECREASED
  4. SINGULAIR [Concomitant]
     Indication: PULMONARY FIBROSIS
  5. PROZAC [Concomitant]
     Indication: DEPRESSION
  6. FUROSEMIDE [Concomitant]
     Indication: PULMONARY FIBROSIS
  7. NORVASC [Concomitant]
     Indication: LUNG DISORDER
  8. ALLOPURINOL [Concomitant]
     Indication: GOUT
  9. ALLOPURINOL [Concomitant]
     Indication: PROPHYLAXIS
  10. FORADIL NEBULIZER [Concomitant]
     Indication: PULMONARY FIBROSIS

REACTIONS (3)
  - DRUG DOSE OMISSION [None]
  - INJECTION SITE HAEMORRHAGE [None]
  - INJECTION SITE NODULE [None]
